FAERS Safety Report 25055369 (Version 1)
Quarter: 2025Q1

REPORT INFORMATION
  Report Type: Report from Study
  Country: BR (occurrence: BR)
  Receive Date: 20250308
  Receipt Date: 20250308
  Transmission Date: 20250409
  Serious: Yes (Other)
  Sender: TAKEDA
  Company Number: BR-TAKEDA-2025TUS023524

PATIENT
  Sex: Female

DRUGS (1)
  1. VEDOLIZUMAB [Suspect]
     Active Substance: VEDOLIZUMAB
     Indication: Crohn^s disease

REACTIONS (6)
  - Crohn^s disease [Unknown]
  - Weight decreased [Unknown]
  - Vomiting [Unknown]
  - Decreased appetite [Unknown]
  - Flatulence [Unknown]
  - Fatigue [Unknown]
